FAERS Safety Report 5385669-X (Version None)
Quarter: 2007Q3

REPORT INFORMATION
  Report Type: 
  Country: None (occurrence: None)
  Receive Date: 20070712
  Receipt Date: 20070702
  Transmission Date: 20080115
  Serious: Yes (Hospitalization)
  Sender: FDA-Public Use
  Company Number: US-PFIZER INC-2007054921

PATIENT
  Sex: Male
  Weight: 79.4 kg

DRUGS (3)
  1. CELEBREX [Suspect]
     Indication: PAIN MANAGEMENT
  2. VIOXX [Suspect]
     Indication: PAIN MANAGEMENT
  3. LISINOPRIL [Concomitant]
     Dates: start: 20031125, end: 20060107

REACTIONS (1)
  - CARDIOVASCULAR DISORDER [None]
